FAERS Safety Report 4431427-X (Version None)
Quarter: 2004Q3

REPORT INFORMATION
  Report Type: 
  Country: None (occurrence: None)
  Receive Date: 20040824
  Receipt Date: 20020403
  Transmission Date: 20050211
  Serious: No
  Sender: FDA-Public Use
  Company Number: JP-GLAXOSMITHKLINE-B0264687A

PATIENT
  Age: 53 Year
  Sex: Male

DRUGS (4)
  1. EPIVIR [Suspect]
     Indication: HIV INFECTION
     Dosage: 150MG TWICE PER DAY
     Route: 048
     Dates: start: 20010713
  2. STOCRIN [Suspect]
     Indication: HIV INFECTION
     Dosage: 600MG PER DAY
     Route: 048
     Dates: start: 20010713
  3. ZERIT [Suspect]
     Indication: HIV INFECTION
     Dosage: 300MG PER DAY
     Route: 048
     Dates: start: 20010713
  4. REBAMIPIDE [Suspect]
     Indication: GASTRITIS
     Dosage: 300MG PER DAY
     Route: 048
     Dates: start: 20010713

REACTIONS (4)
  - EOSINOPHILIC PUSTULAR FOLLICULITIS [None]
  - PIGMENTATION BUCCAL [None]
  - PIGMENTATION DISORDER [None]
  - TONGUE DISCOLOURATION [None]
